FAERS Safety Report 8595456-7 (Version None)
Quarter: 2012Q3

REPORT INFORMATION
  Report Type: 
  Country: None (occurrence: None)
  Receive Date: 20120815
  Receipt Date: 20120703
  Transmission Date: 20120928
  Serious: Yes (Hospitalization)
  Sender: FDA-Public Use
  Company Number: US-009507513-1207USA001370

PATIENT

DRUGS (2)
  1. ZOLINZA [Suspect]
     Indication: GLIOBLASTOMA MULTIFORME
     Dosage: 300 MG, ON DAYS 1-5 WEEKLY,
     Route: 048
     Dates: start: 20120604, end: 20120627
  2. TEMOZOLOMIDE [Suspect]
     Indication: GLIOBLASTOMA MULTIFORME
     Dosage: 75 MG/M2, QD
     Route: 048
     Dates: start: 20120604, end: 20120627

REACTIONS (1)
  - NO ADVERSE EVENT [None]
